FAERS Safety Report 8232708-4 (Version None)
Quarter: 2012Q1

REPORT INFORMATION
  Report Type: 
  Country: None (occurrence: None)
  Receive Date: 20120323
  Receipt Date: 20120317
  Transmission Date: 20120608
  Serious: Yes (Other)
  Sender: FDA-Public Use
  Company Number: US-BAYER-2012-026894

PATIENT

DRUGS (5)
  1. VITAMIN D [Concomitant]
  2. COQ10 [Concomitant]
  3. ALEVE (CAPLET) [Suspect]
     Indication: PAIN
     Route: 048
  4. IBUPROFEN [Suspect]
     Indication: PAIN
  5. FISH OIL [Concomitant]

REACTIONS (1)
  - ULCER [None]
